FAERS Safety Report 12171902 (Version 1)
Quarter: 2016Q1

REPORT INFORMATION
  Report Type: Report from Study
  Country: US (occurrence: US)
  Receive Date: 20160311
  Receipt Date: 20160311
  Transmission Date: 20160526
  Serious: Yes (Other)
  Sender: FDA-Public Use
  Company Number: US-009507513-2012SP033391

PATIENT
  Sex: Female

DRUGS (3)
  1. PEGINTRON [Suspect]
     Active Substance: PEGINTERFERON ALFA-2B
     Indication: HEPATITIS C
     Dosage: UNK UNK, UNKNOWN
     Route: 065
     Dates: start: 20120615
  2. MK-8908 [Suspect]
     Active Substance: INVESTIGATIONAL PRODUCT
     Indication: HEPATITIS C
     Dosage: UNK UNK, UNKNOWN
     Route: 065
     Dates: start: 20120615
  3. INVESTIGATIONAL DRUG (UNSPECIFIED) [Suspect]
     Active Substance: INVESTIGATIONAL PRODUCT
     Indication: HEPATITIS C
     Dosage: UNK UNK, UNKNOWN
     Route: 065
     Dates: start: 20120615

REACTIONS (1)
  - Exposure via father [Unknown]
